FAERS Safety Report 7001190-7 (Version None)
Quarter: 2010Q3

REPORT INFORMATION
  Report Type: 
  Country: None (occurrence: None)
  Receive Date: 20100920
  Receipt Date: 20100707
  Transmission Date: 20110219
  Serious: No
  Sender: FDA-Public Use
  Company Number: US-ASTRAZENECA-2008UW03510

PATIENT
  Age: 518 Month
  Sex: Female
  Weight: 81.2 kg

DRUGS (14)
  1. SEROQUEL [Suspect]
     Indication: SCHIZOPHRENIA
     Route: 048
     Dates: start: 20020101
  2. SEROQUEL [Suspect]
     Route: 048
     Dates: start: 20021113
  3. ZOLOFT [Concomitant]
     Dates: start: 20020826
  4. ZYPREXA [Concomitant]
     Dates: start: 20020826
  5. ZYPREXA [Concomitant]
     Dates: start: 20010101
  6. CELEXA [Concomitant]
     Dates: start: 20021113
  7. BUSPIRONE HCL [Concomitant]
     Dates: start: 20030305
  8. LOPRESSOR [Concomitant]
     Dates: start: 20070906
  9. LISINOPRIL [Concomitant]
     Route: 048
     Dates: start: 20070906
  10. LIPITOR [Concomitant]
     Dates: start: 20070906
  11. GLIPIZIDE [Concomitant]
     Dates: start: 20070906
  12. GEODON [Concomitant]
     Dates: start: 20080101
  13. RISPERDAL [Concomitant]
     Dates: start: 20080101
  14. THORAZINE [Concomitant]
     Dates: start: 20100301

REACTIONS (4)
  - OBESITY [None]
  - ROAD TRAFFIC ACCIDENT [None]
  - TYPE 2 DIABETES MELLITUS [None]
  - WEIGHT INCREASED [None]
